FAERS Safety Report 13853856 (Version 2)
Quarter: 2017Q3

REPORT INFORMATION
  Report Type: Spontaneous
  Country: GB (occurrence: GB)
  Receive Date: 20170810
  Receipt Date: 20170925
  Transmission Date: 20171127
  Serious: Yes (Death, Hospitalization)
  Sender: FDA-Public Use
  Company Number: GB-JNJFOC-20170809023

PATIENT
  Sex: Male

DRUGS (1)
  1. STELARA [Suspect]
     Active Substance: USTEKINUMAB
     Indication: PSORIASIS
     Route: 058
     Dates: start: 201311

REACTIONS (2)
  - Hypertensive cardiomyopathy [Fatal]
  - Hepatic cirrhosis [Fatal]
